FAERS Safety Report 7369122-X (Version None)
Quarter: 2011Q1

REPORT INFORMATION
  Report Type: 
  Country: None (occurrence: None)
  Receive Date: 20110323
  Receipt Date: 20110317
  Transmission Date: 20110831
  Serious: Yes (Hospitalization)
  Sender: FDA-Public Use
  Company Number: JP-ROCHE-729274

PATIENT
  Sex: Male
  Weight: 64 kg

DRUGS (13)
  1. XELODA [Suspect]
     Dosage: IT IS ONE ADMINISTERING WEEKLY HOLIDAY MEDICINE FOR TWO WEEKS.
     Route: 048
     Dates: start: 20100204, end: 20100826
  2. AVASTIN [Suspect]
     Indication: LARGE INTESTINE CARCINOMA
     Dosage: DOSAGE IS UNCERTAIN.
     Route: 041
     Dates: start: 20100204, end: 20100826
  3. MAGNESIUM OXIDE [Concomitant]
     Route: 048
     Dates: start: 20091203
  4. XELODA [Suspect]
     Indication: LARGE INTESTINE CARCINOMA
     Route: 048
     Dates: start: 20090910, end: 20090916
  5. TAGAMET [Concomitant]
     Route: 048
     Dates: start: 20051020
  6. ALESION [Concomitant]
     Route: 048
     Dates: start: 20051107
  7. PYDOXAL [Concomitant]
     Route: 048
     Dates: start: 20080724
  8. ELPLAT [Suspect]
     Route: 041
     Dates: start: 20100204, end: 20100826
  9. XELODA [Suspect]
     Dosage: ONE ADMINISTERING WEEKLY HOLIDAY MEDICINE FOR 900 MG IN THE MORNING.1200 MG IN THE EVENING,2 WEEKS.
     Route: 048
     Dates: start: 20090917, end: 20100101
  10. ELPLAT [Suspect]
     Indication: LARGE INTESTINE CARCINOMA
     Route: 041
     Dates: start: 20091203, end: 20100101
  11. MS CONTIN [Concomitant]
     Route: 048
     Dates: start: 20091203
  12. BIO-THREE [Concomitant]
     Route: 048
     Dates: start: 20091112
  13. URSO 250 [Concomitant]
     Route: 048
     Dates: start: 20051201

REACTIONS (5)
  - CONSTIPATION [None]
  - PAIN [None]
  - DISSEMINATED INTRAVASCULAR COAGULATION [None]
  - BACK PAIN [None]
  - PROTEIN URINE PRESENT [None]
